FAERS Safety Report 12902309 (Version 1)
Quarter: 2016Q4

REPORT INFORMATION
  Report Type: Spontaneous
  Country: US (occurrence: US)
  Receive Date: 20161031
  Receipt Date: 20161031
  Transmission Date: 20170207
  Serious: No
  Sender: FDA-Public Use
  Company Number: None

PATIENT
  Age: 46 Year
  Sex: Female
  Weight: 74.25 kg

DRUGS (8)
  1. NAPROXEN. [Concomitant]
     Active Substance: NAPROXEN
  2. OXYCODONE [Suspect]
     Active Substance: OXYCODONE
     Indication: FIBROMYALGIA
     Dosage: ?          QUANTITY:150 TABLET(S);?
     Route: 048
     Dates: start: 20160915, end: 20161014
  3. AMITRYPTILINE [Concomitant]
     Active Substance: AMITRIPTYLINE
  4. ASSURED BRAND NASAL SPRAY [Concomitant]
  5. OXYCODONE [Suspect]
     Active Substance: OXYCODONE
     Indication: SJOGREN^S SYNDROME
     Dosage: ?          QUANTITY:150 TABLET(S);?
     Route: 048
     Dates: start: 20160915, end: 20161014
  6. IBUPROFEN4-WAY NASAL SPRAY [Concomitant]
  7. PRILOSEC [Concomitant]
     Active Substance: OMEPRAZOLE MAGNESIUM
  8. FLEXERIL (CYCLOBENZAPRINE) [Concomitant]

REACTIONS (6)
  - Abdominal pain upper [None]
  - Dizziness [None]
  - Nausea [None]
  - False positive investigation result [None]
  - Counterfeit drug administered [None]
  - Drug screen positive [None]

NARRATIVE: CASE EVENT DATE: 20161004
